FAERS Safety Report 8898658 (Version 2)
Quarter: 2012Q4

REPORT INFORMATION
  Report Type: 
  Country: IN (occurrence: US)
  Receive Date: 20121109
  Receipt Date: 20121113
  Transmission Date: 20130627
  Serious: No
  Sender: FDA-Public Use
  Company Number: US-BAYER-2012-117740

PATIENT
  Sex: Female

DRUGS (3)
  1. CLIMARA [Suspect]
     Indication: HRT
     Dosage: UNK
     Dates: start: 201210
  2. PROCARDIA [Concomitant]
     Indication: BLOOD PRESSURE HIGH
  3. AVACOR [Concomitant]
     Indication: BLOOD PRESSURE HIGH

REACTIONS (4)
  - Application site pruritus [Not Recovered/Not Resolved]
  - Application site pain [Not Recovered/Not Resolved]
  - Application site reaction [None]
  - Application site reaction [Not Recovered/Not Resolved]
